FAERS Safety Report 5338959-0 (Version None)
Quarter: 2007Q2

REPORT INFORMATION
  Report Type: 
  Country: None (occurrence: None)
  Receive Date: 20070404
  Receipt Date: 20061110
  Transmission Date: 20071010
  Serious: Yes (Other)
  Sender: FDA-Public Use
  Company Number: HQWYE386114NOV06

PATIENT
  Age: 74 Year
  Sex: Female
  Weight: 86.26 kg

DRUGS (3)
  1. ALAVERT [Suspect]
     Indication: HYPERSENSITIVITY
     Dosage: 1 TABLET ONCE, ORAL
     Route: 048
     Dates: start: 20061001, end: 20061001
  2. ALTACE [Concomitant]
  3. TOPROL-XL [Concomitant]

REACTIONS (1)
  - INSOMNIA [None]
